FAERS Safety Report 9851912 (Version 1)
Quarter: 2013Q4

REPORT INFORMATION
  Report Type: Spontaneous
  Country: US (occurrence: None)
  Receive Date: 20131127
  Receipt Date: 20131127
  Transmission Date: 20140711
  Serious: No
  Sender: FDA-Public Use
  Company Number: 223222LEO

PATIENT
  Sex: Male

DRUGS (4)
  1. PICATO (INGENOL MEBUTATE) (0.015 %) [Suspect]
     Indication: ROSACEA
     Route: 061
     Dates: start: 20130807, end: 20130809
  2. DIABETIC MEDICATIONS (ORAL ANTIDIABETICS) [Concomitant]
  3. HIGH BLOOD PRESSURE [Concomitant]
  4. NITROUS OXIDE (NITROUS OXIDE) [Concomitant]

REACTIONS (5)
  - Application site dryness [None]
  - Application site haemorrhage [None]
  - Drug administration error [None]
  - Off label use [None]
  - Off label use [None]
